FAERS Safety Report 21548407 (Version 1)
Quarter: 2022Q4

REPORT INFORMATION
  Report Type: Spontaneous
  Country: SA (occurrence: SA)
  Receive Date: 20221103
  Receipt Date: 20221103
  Transmission Date: 20230113
  Serious: Yes (Death, Other)
  Sender: FDA-Public Use
  Company Number: SA-AMGEN-SAUSP2022185027

PATIENT

DRUGS (1)
  1. PROLIA [Suspect]
     Active Substance: DENOSUMAB
     Indication: Osteoporosis postmenopausal
     Dosage: UNK, Q6MO
     Route: 058

REACTIONS (9)
  - Death [Fatal]
  - Hip fracture [Unknown]
  - Spinal fracture [Unknown]
  - Lower limb fracture [Unknown]
  - Radius fracture [Unknown]
  - Ulna fracture [Unknown]
  - Wrist fracture [Unknown]
  - Upper limb fracture [Unknown]
  - Fracture [Unknown]
